FAERS Safety Report 4440861-3 (Version None)
Quarter: 2004Q3

REPORT INFORMATION
  Report Type: 
  Country: None (occurrence: None)
  Receive Date: 20040903
  Receipt Date: 20040806
  Transmission Date: 20050211
  Serious: Yes (Life-Threatening)
  Sender: FDA-Public Use
  Company Number: US-BRISTOL-MYERS SQUIBB COMPANY-12663100

PATIENT
  Age: 70 Year
  Sex: Female

DRUGS (3)
  1. ERBITUX [Suspect]
     Indication: SMALL INTESTINE CARCINOMA METASTATIC
     Dosage: LOADING DOSE, 600 MG. DISCONTINUED.
     Route: 042
     Dates: start: 20040805, end: 20040805
  2. BENADRYL [Concomitant]
     Indication: PREMEDICATION
     Route: 042
     Dates: start: 20440805, end: 20040805
  3. PLAVIX [Concomitant]

REACTIONS (2)
  - BLOOD PRESSURE INCREASED [None]
  - DYSPNOEA [None]
